FAERS Safety Report 23396196 (Version 2)
Quarter: 2024Q1

REPORT INFORMATION
  Report Type: Spontaneous
  Country: CA (occurrence: CA)
  Receive Date: 20240112
  Receipt Date: 20240304
  Transmission Date: 20240410
  Serious: Yes (Other)
  Sender: FDA-Public Use
  Company Number: CA-CELLTRION INC.-2024CA000598

PATIENT

DRUGS (5)
  1. INFLECTRA [Suspect]
     Active Substance: INFLIXIMAB-DYYB
     Indication: Rheumatoid arthritis
     Dosage: 300 MG , EVERY 8 WEEKS
     Route: 042
     Dates: start: 20220420, end: 20230120
  2. INFLECTRA [Suspect]
     Active Substance: INFLIXIMAB-DYYB
     Dosage: 300 MG , EVERY 12 WEEKS
     Route: 042
     Dates: start: 20230517
  3. INFLECTRA [Suspect]
     Active Substance: INFLIXIMAB-DYYB
     Dosage: 300 MG , EVERY 12 WEEKS
     Route: 042
     Dates: start: 20230907
  4. INFLECTRA [Suspect]
     Active Substance: INFLIXIMAB-DYYB
     Dosage: 300 MG , EVERY 8 WEEKS
     Route: 042
     Dates: start: 20231102
  5. METHOTREXATE [Concomitant]
     Active Substance: METHOTREXATE
     Dosage: 1 DF, DOSE/FREQ NOT KNOWN
     Route: 065

REACTIONS (1)
  - Uveitis [Not Recovered/Not Resolved]
